FAERS Safety Report 7507096-9 (Version None)
Quarter: 2011Q2

REPORT INFORMATION
  Report Type: 
  Country: None (occurrence: None)
  Receive Date: 20110411
  Receipt Date: 20100708
  Transmission Date: 20111010
  Serious: Yes (Congenital Anomaly, Other)
  Sender: FDA-Public Use
  Company Number: 8030822

PATIENT
  Sex: Male

DRUGS (5)
  1. KEPPRA [Suspect]
     Dosage: 500 MG BID, 500 MG BID
     Route: 064
     Dates: start: 20050815
  2. ALBUTEROL [Concomitant]
  3. PRENATAL VITAMINS /01549301/ (PRENATAL VITAMINS /01549301/) [Concomitant]
  4. MONTELUKAST SODIUM [Concomitant]
  5. CITALOPRAM HYDROBROMIDE [Concomitant]

REACTIONS (4)
  - VENTRICULAR SEPTAL DEFECT [None]
  - DRUG EXPOSURE VIA BREAST MILK [None]
  - DRUG EXPOSURE DURING PREGNANCY [None]
  - SPEECH DISORDER DEVELOPMENTAL [None]
